FAERS Safety Report 24908315 (Version 2)
Quarter: 2025Q1

REPORT INFORMATION
  Report Type: Spontaneous
  Country: BR (occurrence: BR)
  Receive Date: 20250131
  Receipt Date: 20250213
  Transmission Date: 20250409
  Serious: Yes (Death, Life-Threatening, Hospitalization, Other)
  Sender: CELLTRION
  Company Number: BR-CELLTRION INC.-2025BR002266

PATIENT

DRUGS (3)
  1. INFLIXIMAB [Suspect]
     Active Substance: INFLIXIMAB
     Indication: Crohn^s disease
     Route: 042
  2. AZATHIOPRINE [Concomitant]
     Active Substance: AZATHIOPRINE
     Indication: Crohn^s disease
     Route: 048
  3. BACTRIM [Concomitant]
     Active Substance: SULFAMETHOXAZOLE\TRIMETHOPRIM
     Indication: Paracoccidioides infection
     Route: 048
     Dates: start: 202104

REACTIONS (6)
  - Crohn^s disease [Fatal]
  - Acute abdomen [Fatal]
  - Septic shock [Fatal]
  - Syncope [Not Recovered/Not Resolved]
  - Condition aggravated [Not Recovered/Not Resolved]
  - Paracoccidioides infection [Not Recovered/Not Resolved]

NARRATIVE: CASE EVENT DATE: 20210101
